FAERS Safety Report 7038393-1 (Version None)
Quarter: 2010Q4

REPORT INFORMATION
  Report Type: 
  Country: None (occurrence: None)
  Receive Date: 20101011
  Receipt Date: 20100604
  Transmission Date: 20110411
  Serious: No
  Sender: FDA-Public Use
  Company Number: US-PFIZER INC-2010071135

PATIENT
  Sex: Male

DRUGS (3)
  1. NEURONTIN [Suspect]
     Indication: HYPERREFLEXIA
     Dosage: 0.6 ML, 3X/DAY
     Route: 048
     Dates: start: 20100520
  2. NEURONTIN [Suspect]
     Indication: FOOD AVERSION
  3. PREVACID [Concomitant]
     Dosage: UNK

REACTIONS (1)
  - RASH PRURITIC [None]
